FAERS Safety Report 10551203 (Version 2)
Quarter: 2015Q1

REPORT INFORMATION
  Report Type: Spontaneous
  Country: US (occurrence: None)
  Receive Date: 20141020
  Receipt Date: 20150120
  Transmission Date: 20150720
  Serious: No
  Sender: FDA-Public Use
  Company Number: AEGR000650

PATIENT
  Age: 44 Year
  Sex: Male
  Weight: 63 kg

DRUGS (2)
  1. VITAMIN D [Concomitant]
     Active Substance: CHOLECALCIFEROL
  2. JUXTAPID [Suspect]
     Active Substance: LOMITAPIDE MESYLATE
     Indication: TYPE IIA HYPERLIPIDAEMIA
     Route: 048
     Dates: start: 201311, end: 201312

REACTIONS (2)
  - Weight decreased [None]
  - Hepatic enzyme increased [None]

NARRATIVE: CASE EVENT DATE: 201311
